FAERS Safety Report 19951197 (Version 4)
Quarter: 2022Q1

REPORT INFORMATION
  Report Type: Report from Study
  Country: US (occurrence: US)
  Receive Date: 20211013
  Receipt Date: 20220202
  Transmission Date: 20220423
  Serious: Yes (Hospitalization)
  Sender: FDA-Public Use
  Company Number: US-ABBVIE-21K-163-4115304-00

PATIENT
  Sex: Female

DRUGS (2)
  1. SKYRIZI [Suspect]
     Active Substance: RISANKIZUMAB-RZAA
     Indication: Psoriasis
     Dosage: WEEK 0
     Route: 058
     Dates: start: 20210809
  2. SKYRIZI [Suspect]
     Active Substance: RISANKIZUMAB-RZAA
     Dosage: WEEK 4 THEREAFTER
     Route: 058
     Dates: start: 202109

REACTIONS (13)
  - Pulmonary thrombosis [Recovered/Resolved]
  - Hypopnoea [Unknown]
  - Pruritus [Recovering/Resolving]
  - Loss of personal independence in daily activities [Unknown]
  - Psoriasis [Not Recovered/Not Resolved]
  - Unevaluable event [Unknown]
  - Nasopharyngitis [Unknown]
  - Throat irritation [Unknown]
  - Sinus congestion [Unknown]
  - Influenza [Unknown]
  - Nasopharyngitis [Unknown]
  - Psoriasis [Unknown]
  - Overweight [Unknown]

NARRATIVE: CASE EVENT DATE: 20210101
